FAERS Safety Report 9306364 (Version 1)
Quarter: 2013Q2

REPORT INFORMATION
  Report Type: Spontaneous
  Country: HU (occurrence: None)
  Receive Date: 20130520
  Receipt Date: 20130520
  Transmission Date: 20140414
  Serious: Yes (Hospitalization)
  Sender: FDA-Public Use
  Company Number: IMP_06696_2013

PATIENT
  Age: 56 Year
  Sex: Female

DRUGS (5)
  1. CHLOROQUINE [Suspect]
     Indication: MIXED CONNECTIVE TISSUE DISEASE
     Dates: start: 200908, end: 201105
  2. CHLOROQUINE [Suspect]
     Indication: OFF LABEL USE
     Dates: start: 200908, end: 201105
  3. AZATHIOPRINE [Concomitant]
  4. METHOTREXATE [Concomitant]
  5. METHYLPREDNISOLONE [Concomitant]

REACTIONS (14)
  - Cardiotoxicity [None]
  - Hypotension [None]
  - Atrioventricular block complete [None]
  - Electrocardiogram QRS complex prolonged [None]
  - Electrocardiogram QT prolonged [None]
  - Torsade de pointes [None]
  - Ventricular fibrillation [None]
  - Mixed connective tissue disease [None]
  - Condition aggravated [None]
  - Cardiac arrest [None]
  - Myopathy [None]
  - Cardiomyopathy [None]
  - Bundle branch block right [None]
  - Bundle branch block left [None]
